FAERS Safety Report 4729652-3 (Version None)
Quarter: 2005Q3

REPORT INFORMATION
  Report Type: 
  Country: None (occurrence: None)
  Receive Date: 20050728
  Receipt Date: 20050715
  Transmission Date: 20060218
  Serious: Yes (Other)
  Sender: FDA-Public Use
  Company Number: 2005103780

PATIENT
  Sex: Female

DRUGS (6)
  1. XANAX [Suspect]
     Indication: RELAXATION THERAPY
     Dosage: 0.5 MG (0.5 MG, 1 IN 1 D)
  2. DETROL LA [Suspect]
     Indication: POLLAKIURIA
     Dosage: 4 MG (4 MG, 1 IN 1 D) ORAL
     Route: 048
     Dates: start: 20050712
  3. DARVOCET [Suspect]
     Indication: RELAXATION THERAPY
  4. TRAZODONE (TRAZODONE) [Suspect]
     Indication: RELAXATION THERAPY
     Dosage: 50 MG (50 MG, 1 IN 1 D)
  5. WELLBUTRIN [Concomitant]
  6. LIPITOR [Concomitant]

REACTIONS (9)
  - ANXIETY [None]
  - DRUG INTERACTION [None]
  - FLUID RETENTION [None]
  - GASTROOESOPHAGEAL REFLUX DISEASE [None]
  - HIATUS HERNIA [None]
  - INSOMNIA [None]
  - METASTASES TO LYMPH NODES [None]
  - RESTLESSNESS [None]
  - TONGUE NEOPLASM MALIGNANT STAGE UNSPECIFIED [None]
